FAERS Safety Report 13567419 (Version 1)
Quarter: 2017Q2

REPORT INFORMATION
  Report Type: Spontaneous
  Country: US (occurrence: US)
  Receive Date: 20170519
  Receipt Date: 20170519
  Transmission Date: 20170830
  Serious: Yes (Life-Threatening, Hospitalization)
  Sender: FDA-Public Use
  Company Number: None

PATIENT
  Age: 64 Year
  Sex: Male

DRUGS (2)
  1. DOFETILIDE. [Suspect]
     Active Substance: DOFETILIDE
     Indication: ATRIAL FIBRILLATION
     Route: 048
     Dates: start: 20161106, end: 20161108
  2. DOFETILIDE. [Suspect]
     Active Substance: DOFETILIDE
     Indication: MITRAL VALVE REPAIR
     Route: 048
     Dates: start: 20161106, end: 20161108

REACTIONS (3)
  - Torsade de pointes [None]
  - Electrocardiogram QT prolonged [None]
  - Palpitations [None]

NARRATIVE: CASE EVENT DATE: 20161108
